FAERS Safety Report 25539091 (Version 1)
Quarter: 2025Q3

REPORT INFORMATION
  Report Type: Spontaneous
  Country: GB (occurrence: GB)
  Receive Date: 20250710
  Receipt Date: 20250710
  Transmission Date: 20251021
  Serious: Yes (Other)
  Sender: TORRENT PHARMA INC.
  Company Number: None

PATIENT
  Age: 67 Year
  Sex: Female

DRUGS (15)
  1. CLOPIDOGREL [Suspect]
     Active Substance: CLOPIDOGREL BISULFATE
     Indication: Product used for unknown indication
     Dosage: CLOPIDOGREL 75 MG TABLETS ONE TO BE TAKEN EACH DAY
     Route: 065
  2. ATORVASTATIN [Concomitant]
     Active Substance: ATORVASTATIN
     Indication: Product used for unknown indication
     Dosage: ATORVASTATIN 40 MG TABLETS ONE TO BE ?TAKEN EACH DAY
     Route: 065
  3. BISOPROLOL [Concomitant]
     Active Substance: BISOPROLOL
     Indication: Product used for unknown indication
     Dosage: BISOPROLOL 5 MG TABLETS ONE TO BE TAKEN AT NIGHT
     Route: 065
  4. COCODAMOL [Concomitant]
     Active Substance: ACETAMINOPHEN\CODEINE PHOSPHATE
     Indication: Product used for unknown indication
     Dosage: CO-CODAMOL 15 MG / 500 MG TABLETS TWO TO BE TAKEN FOUR TIMES ?A DAY
     Route: 065
  5. DONEPEZIL [Concomitant]
     Active Substance: DONEPEZIL
     Indication: Product used for unknown indication
     Dosage: DONEPEZIL 5 MG TABLETS ONE TO BE TAKEN AT NIGHT
     Route: 065
  6. DULOXETINE [Concomitant]
     Active Substance: DULOXETINE
     Indication: Product used for unknown indication
     Dosage: DULOXETINE 60 MG GASTRO-RESISTANT ?CAPSULES ONE TO BE TAKEN TWICE DAILY
     Route: 065
  7. EMPAGLIFLOZIN [Concomitant]
     Active Substance: EMPAGLIFLOZIN
     Indication: Product used for unknown indication
     Dosage: EMPAGLIFLOZIN 10 MG TABLETS ONE TO BE TAKEN DAILY
     Route: 065
  8. FERROUS FUMARATE [Concomitant]
     Active Substance: FERROUS FUMARATE
     Indication: Product used for unknown indication
     Dosage: FERROUS FUMARATE 210 MG TABLETS ONE TO BE TAKEN EACH DAY AT LUNCHTIME
     Route: 065
  9. FOLIC ACID [Concomitant]
     Active Substance: FOLIC ACID
     Indication: Product used for unknown indication
     Dosage: FOLIC ACID 5 MG TABLETS ONE TO BE TAKEN EACH DAY
     Route: 065
  10. GABAPENTIN [Concomitant]
     Active Substance: GABAPENTIN
     Indication: Product used for unknown indication
     Dosage: GABAPENTIN 600 MG TABLETS ONE TO BE TAKEN THREE TIMES A DAY
     Route: 065
  11. Humulin M [Concomitant]
     Indication: Product used for unknown indication
     Route: 058
  12. LANSOPRAZOLE [Concomitant]
     Active Substance: LANSOPRAZOLE
     Indication: Product used for unknown indication
     Dosage: LANSOPRAZOLE 15 MG GASTRO-RESISTANT CAPSULES ONE TO BE TAKEN TWICE A DAY
     Route: 065
  13. RANOLAZINE [Concomitant]
     Active Substance: RANOLAZINE
     Indication: Product used for unknown indication
     Dosage: RANOLAZINE 375 MG MODIFIED-RELEASE TABLETS ONE TO BE TAKEN TWICE A DAY
     Route: 065
  14. SERTRALINE [Concomitant]
     Active Substance: SERTRALINE HYDROCHLORIDE
     Indication: Product used for unknown indication
     Dosage: SERTRALINE 50 MG TABLETS ONE TO BE TAKEN EACH DAY
     Route: 065
  15. SITAGLIPTIN [Concomitant]
     Active Substance: SITAGLIPTIN
     Indication: Product used for unknown indication
     Dosage: SITAGLIPTIN 50 MG TABLETS ONE TO BE TAKEN EACH MORNING
     Route: 065

REACTIONS (6)
  - Melaena [Unknown]
  - Cardiac arrest [Unknown]
  - Unresponsive to stimuli [Unknown]
  - Hypoxia [Unknown]
  - Hypovolaemia [Unknown]
  - Haematemesis [Unknown]
